FAERS Safety Report 20913378 (Version 5)
Quarter: 2022Q3

REPORT INFORMATION
  Report Type: Spontaneous
  Country: PT (occurrence: PT)
  Receive Date: 20220603
  Receipt Date: 20220825
  Transmission Date: 20221027
  Serious: Yes (Other)
  Sender: FDA-Public Use
  Company Number: None

PATIENT
  Age: 82 Year
  Sex: Male
  Weight: 79 kg

DRUGS (23)
  1. VELTASSA [Suspect]
     Active Substance: PATIROMER
     Indication: Hyperkalaemia
     Dosage: 25.2 G/DAY (3 SACHETS OF 8.4 G)
     Route: 048
     Dates: start: 20201203, end: 20220225
  2. VELTASSA [Suspect]
     Active Substance: PATIROMER
     Dosage: 16.8 G/DAY (2 SACHETS OF 8.4 G)
     Route: 048
     Dates: start: 20220225, end: 20220420
  3. FUROSEMIDE [Suspect]
     Active Substance: FUROSEMIDE
     Indication: Cardiac failure
     Dosage: 1 TABLET ON AN EMPTY STOMACH
     Route: 048
     Dates: end: 20220420
  4. FUROSEMIDE [Suspect]
     Active Substance: FUROSEMIDE
     Route: 048
     Dates: start: 20220509
  5. SPIRONOLACTONE [Suspect]
     Active Substance: SPIRONOLACTONE
     Indication: Cardiac failure
     Dosage: 1 TABLET ON AN EMPTY STOMACH
     Route: 048
     Dates: end: 20220317
  6. SPIRONOLACTONE [Suspect]
     Active Substance: SPIRONOLACTONE
     Dosage: 1 TABLET ON AN EMPTY STOMACH
     Route: 048
     Dates: start: 20220317, end: 20220420
  7. SPIRONOLACTONE [Suspect]
     Active Substance: SPIRONOLACTONE
     Dosage: 1 TABLET ON AN EMPTY STOMACH
     Route: 048
     Dates: start: 20220509
  8. BISOPROLOL [Concomitant]
     Active Substance: BISOPROLOL
     Dosage: 1 TABLET WITH BREAKFAST
     Route: 048
  9. TROMALYT [Concomitant]
     Active Substance: ASPIRIN
     Dosage: 1 TABLET WITH BREAKFAST, MODIFIED-RELEASE CAPSULE
     Route: 048
  10. ALLOPURINOL [Concomitant]
     Active Substance: ALLOPURINOL
     Dosage: HALF A TABLET WITH BREAKFAST
     Route: 048
  11. PRAVASTATIN SODIUM [Concomitant]
     Active Substance: PRAVASTATIN SODIUM
     Dosage: 1 TABLET WITH DINNER
     Route: 048
  12. CALCIUM\POLYSTYRENE [Concomitant]
     Active Substance: CALCIUM\POLYSTYRENE
     Dosage: 1 MEASURING SPOON 2 X DAY, HAVING INCREASED THE DOSE TO 1 MEASURING SPOON 3 X DAY, 759 - 949 MG/G
     Route: 048
     Dates: start: 20220509
  13. INSULINA HUMALOG [Concomitant]
     Dosage: ACCORDING TO CAPILLARY BLOOD GLUCOSE
     Route: 058
  14. OMEPRAZOLE [Concomitant]
     Active Substance: OMEPRAZOLE
     Dosage: 1 TABLET ON AN EMPTY STOMACH
     Route: 048
  15. LAMIVUDINE [Concomitant]
     Active Substance: LAMIVUDINE
     Dosage: 1 TABLET WITH BREAKFAST
     Route: 048
  16. LERCANIDIPINA [LERCANIDIPINE] [Concomitant]
     Dosage: 1 TABLET WITH DINNER
     Route: 048
  17. TRAZODONE HYDROCHLORIDE [Concomitant]
     Active Substance: TRAZODONE HYDROCHLORIDE
     Dosage: 1 TABLET BEFORE GOING TO BED
     Route: 048
  18. DOLUTEGRAVIR [Concomitant]
     Active Substance: DOLUTEGRAVIR
     Dosage: 1 TABLET WITH BREAKFAST
     Route: 048
  19. ENTRESTO [Concomitant]
     Active Substance: SACUBITRIL\VALSARTAN
     Dosage: 1 TABLET WITH BREAKFAST + 1 TABLET WITH DINNER, 97 MG PLUS 103 MG
     Route: 048
  20. INVOKANA [Concomitant]
     Active Substance: CANAGLIFLOZIN
     Route: 048
  21. CALCIUM CARBONATE [Concomitant]
     Active Substance: CALCIUM CARBONATE
     Dosage: 1 TABLET AT BREAKFAST
     Route: 048
  22. LANTUS [Concomitant]
     Active Substance: INSULIN GLARGINE
     Dosage: 12 UNITS AT BEDTIME
     Route: 058
  23. LANTUS [Concomitant]
     Active Substance: INSULIN GLARGINE
     Dosage: 30 UNITS ON AN EMPTY STOMACH
     Route: 058

REACTIONS (3)
  - Metabolic acidosis [Recovered/Resolved]
  - Acute kidney injury [Not Recovered/Not Resolved]
  - Hyperkalaemia [Unknown]

NARRATIVE: CASE EVENT DATE: 20220225
